FAERS Safety Report 6371475-6 (Version None)
Quarter: 2009Q3

REPORT INFORMATION
  Report Type: 
  Country: None (occurrence: None)
  Receive Date: 20090923
  Receipt Date: 20071008
  Transmission Date: 20100115
  Serious: No
  Sender: FDA-Public Use
  Company Number: US-ASTRAZENECA-2007UW13667

PATIENT
  Age: 43 Year
  Sex: Male
  Weight: 81.6 kg

DRUGS (24)
  1. SEROQUEL [Suspect]
     Indication: POST-TRAUMATIC STRESS DISORDER
     Dosage: 30 TO 300 MG
     Route: 048
     Dates: start: 20041012, end: 20060926
  2. SEROQUEL [Suspect]
     Dosage: 100 - 300 MG
     Route: 048
     Dates: start: 20041012, end: 20070626
  3. TRAZODONE [Concomitant]
  4. BUPROPION HCL [Concomitant]
  5. NYSTATIN [Concomitant]
     Dosage: 10000 UNIT/ML
  6. SIMVASTATIN [Concomitant]
  7. LISINOPRIL [Concomitant]
  8. METHOCARBAMOL [Concomitant]
  9. LORATADINE [Concomitant]
  10. IBUPROFEN [Concomitant]
  11. FLUNISOLIDE [Concomitant]
  12. FELODIPINE [Concomitant]
  13. NYSTATIN [Concomitant]
  14. COMBIVENT [Concomitant]
  15. ACETAMINOPHEN [Concomitant]
  16. BACLOFEN [Concomitant]
     Route: 048
  17. CLARITIN [Concomitant]
     Route: 048
  18. CLOTRIMAZOLE [Concomitant]
  19. GLIPIZIDE [Concomitant]
     Dosage: 5 - 10 MG
     Route: 048
  20. HALOPERIDOL [Concomitant]
     Route: 048
  21. METFORMIN HCL [Concomitant]
     Route: 048
  22. SERTRALINE HCL [Concomitant]
     Route: 048
  23. TEMAZEPAM [Concomitant]
     Route: 048
  24. CROMOLYN SODIUM [Concomitant]

REACTIONS (9)
  - ABDOMINAL DISTENSION [None]
  - COUGH [None]
  - DIABETES MELLITUS [None]
  - DIARRHOEA [None]
  - HYPERLIPIDAEMIA [None]
  - MALAISE [None]
  - ONYCHOMYCOSIS [None]
  - OSTEOARTHRITIS [None]
  - VISION BLURRED [None]
